FAERS Safety Report 5083293-X (Version None)
Quarter: 2006Q3

REPORT INFORMATION
  Report Type: 
  Country: None (occurrence: None)
  Receive Date: 20060720
  Receipt Date: 20060515
  Transmission Date: 20061208
  Serious: Yes (Hospitalization, Other)
  Sender: FDA-Public Use
  Company Number: 2006064702

PATIENT
  Age: 62 Year
  Sex: Male
  Weight: 76.2043 kg

DRUGS (1)
  1. CELEBREX [Suspect]
     Indication: ROTATOR CUFF REPAIR
     Dosage: 200 MG (200 MG, 1 IN 1 D)
     Dates: start: 20040101, end: 20041201

REACTIONS (1)
  - CEREBROVASCULAR ACCIDENT [None]
